FAERS Safety Report 24675614 (Version 1)
Quarter: 2024Q4

REPORT INFORMATION
  Report Type: Spontaneous
  Country: HU (occurrence: HU)
  Receive Date: 20241128
  Receipt Date: 20241128
  Transmission Date: 20250114
  Serious: Yes (Life-Threatening, Hospitalization)
  Sender: PFIZER
  Company Number: HU-PFIZER INC-PV202400152470

PATIENT
  Age: 41 Year
  Sex: Female

DRUGS (1)
  1. RITUXIMAB [Suspect]
     Active Substance: RITUXIMAB
     Dosage: UNK

REACTIONS (4)
  - Pneumonia [Unknown]
  - Respiratory failure [Unknown]
  - Sepsis [Unknown]
  - Cellulitis [Unknown]
